FAERS Safety Report 6690437-2 (Version None)
Quarter: 2010Q2

REPORT INFORMATION
  Report Type: 
  Country: None (occurrence: None)
  Receive Date: 20100421
  Receipt Date: 20090415
  Transmission Date: 20101027
  Serious: No
  Sender: FDA-Public Use
  Company Number: US-ASTRAZENECA-2009UW09449

PATIENT
  Age: 80 Year
  Sex: Male
  Weight: 81.6 kg

DRUGS (6)
  1. CASODEX [Suspect]
     Indication: PROSTATE CANCER
     Route: 048
  2. FLOMAX [Concomitant]
  3. COUMADIN [Concomitant]
  4. ISOSORBIDE DINITRATE [Concomitant]
  5. AMBIEN [Concomitant]
  6. LUPRON [Concomitant]

REACTIONS (3)
  - FATIGUE [None]
  - INTERNATIONAL NORMALISED RATIO INCREASED [None]
  - MALAISE [None]
